FAERS Safety Report 15580713 (Version 1)
Quarter: 2018Q4

REPORT INFORMATION
  Report Type: Spontaneous
  Country: US (occurrence: US)
  Receive Date: 20181103
  Receipt Date: 20181103
  Transmission Date: 20190205
  Serious: Yes (Life-Threatening, Hospitalization)
  Sender: FDA-Public Use
  Company Number: None

PATIENT
  Age: 60 Year
  Sex: Female
  Weight: 63 kg

DRUGS (13)
  1. DULOXETINE. [Suspect]
     Active Substance: DULOXETINE
     Indication: HYPERHIDROSIS
     Dosage: ?          QUANTITY:90 CAPSULE(S);?
     Route: 048
     Dates: start: 20151014, end: 20181024
  2. FLOMAX [Concomitant]
     Active Substance: TAMSULOSIN HYDROCHLORIDE
  3. FLEXERIL [Concomitant]
     Active Substance: CYCLOBENZAPRINE HYDROCHLORIDE
  4. TYLENOL [Concomitant]
     Active Substance: ACETAMINOPHEN
  5. CYMBALTA [Concomitant]
     Active Substance: DULOXETINE HYDROCHLORIDE
  6. LIPITOR [Concomitant]
     Active Substance: ATORVASTATIN CALCIUM
  7. ALODENDRONATE [Concomitant]
  8. RESTORIL [Concomitant]
     Active Substance: TEMAZEPAM
  9. ASPIRIN. [Concomitant]
     Active Substance: ASPIRIN
  10. ADVIL [Concomitant]
     Active Substance: IBUPROFEN
  11. ARIMIDEX [Concomitant]
     Active Substance: ANASTROZOLE
  12. BUTALBITAL [Concomitant]
     Active Substance: BUTALBITAL
  13. GABAPENTIN. [Concomitant]
     Active Substance: GABAPENTIN

REACTIONS (13)
  - Cyanosis [None]
  - Paraesthesia [None]
  - Aphasia [None]
  - Economic problem [None]
  - Hyperhidrosis [None]
  - Therapy cessation [None]
  - Hemiparesis [None]
  - Tremor [None]
  - Dizziness [None]
  - Product complaint [None]
  - Drug withdrawal syndrome [None]
  - Loss of consciousness [None]
  - Apparent death [None]

NARRATIVE: CASE EVENT DATE: 20181029
